FAERS Safety Report 20693948 (Version 1)
Quarter: 2022Q2

REPORT INFORMATION
  Report Type: Spontaneous
  Country: BR (occurrence: BR)
  Receive Date: 20220411
  Receipt Date: 20220411
  Transmission Date: 20220721
  Serious: Yes (Other)
  Sender: FDA-Public Use
  Company Number: BR-LUPIN PHARMACEUTICALS INC.-2022-05145

PATIENT

DRUGS (9)
  1. ETHAMBUTOL [Suspect]
     Active Substance: ETHAMBUTOL HYDROCHLORIDE
     Indication: Tuberculosis
     Dosage: UNK (RHZE REGIMEN)
     Route: 065
     Dates: start: 201006
  2. ETHAMBUTOL [Suspect]
     Active Substance: ETHAMBUTOL HYDROCHLORIDE
     Dosage: UNK (SELTZ REGIME)
     Route: 065
     Dates: start: 201103
  3. RIFAMPIN [Suspect]
     Active Substance: RIFAMPIN
     Indication: Tuberculosis
     Dosage: UNK (RHZ REGIMEN)
     Route: 065
     Dates: start: 200905
  4. RIFAMPIN [Suspect]
     Active Substance: RIFAMPIN
     Dosage: UNK (RHZE REGIMEN)
     Route: 065
     Dates: start: 201006
  5. PYRAZINAMIDE [Suspect]
     Active Substance: PYRAZINAMIDE
     Indication: Tuberculosis
     Dosage: UNK (RHZ REGIMEN)
     Route: 065
     Dates: start: 200905
  6. PYRAZINAMIDE [Suspect]
     Active Substance: PYRAZINAMIDE
     Dosage: UNK (RHZE REGIMEN)
     Route: 065
     Dates: start: 201006
  7. PYRAZINAMIDE [Suspect]
     Active Substance: PYRAZINAMIDE
     Dosage: UNK (SELTZ)
     Route: 065
  8. ISONIAZID [Suspect]
     Active Substance: ISONIAZID
     Indication: Tuberculosis
     Dosage: UNK (RHZ REGIMEN)
     Route: 065
     Dates: start: 200905
  9. ISONIAZID [Suspect]
     Active Substance: ISONIAZID
     Dosage: UNK (RHZE REGIMEN REINTODUCED)
     Route: 065
     Dates: start: 201006

REACTIONS (1)
  - Treatment failure [Unknown]

NARRATIVE: CASE EVENT DATE: 20090101
